FAERS Safety Report 5771533-0 (Version None)
Quarter: 2008Q2

REPORT INFORMATION
  Report Type: 
  Country: None (occurrence: None)
  Receive Date: 20080611
  Receipt Date: 20080602
  Transmission Date: 20081010
  Serious: Yes (Hospitalization)
  Sender: FDA-Public Use
  Company Number: AZAFR200800132

PATIENT
  Age: 55 Year
  Sex: Male
  Weight: 70 kg

DRUGS (8)
  1. VIDAZA [Suspect]
     Indication: ACUTE MYELOID LEUKAEMIA
     Dosage: (150 MG DAILY X 7), SUBCUTANEOUS
     Route: 058
     Dates: start: 20070921, end: 20070927
  2. HYDREA [Concomitant]
  3. GLYBURIDE [Concomitant]
  4. TENORMIN [Concomitant]
  5. PRAVASTATIN [Concomitant]
  6. ASPEGIC 1000 [Concomitant]
  7. OMEPRAZOLE [Concomitant]
  8. PREVISCAN (FLUINDIONE) [Concomitant]

REACTIONS (1)
  - INTERSTITIAL LUNG DISEASE [None]
